FAERS Safety Report 7220550-2 (Version None)
Quarter: 2011Q1

REPORT INFORMATION
  Report Type: 
  Country: None (occurrence: None)
  Receive Date: 20110111
  Receipt Date: 20101228
  Transmission Date: 20110831
  Serious: No
  Sender: FDA-Public Use
  Company Number: US-B.I. PHARMACEUTICALS,INC./RIDGEFIELD-2011-BP-00313BP

PATIENT
  Age: 73 Year
  Sex: Male

DRUGS (13)
  1. ASPIRIN [Concomitant]
     Indication: PROPHYLAXIS
  2. MULTIVITAMIN [Concomitant]
     Indication: PROPHYLAXIS
  3. ALLOPURINOL [Concomitant]
  4. LEVAMIN [Concomitant]
     Indication: DIABETES MELLITUS
  5. PRAVACHOL [Concomitant]
     Indication: BLOOD CHOLESTEROL INCREASED
  6. METFORMIN [Concomitant]
     Indication: DIABETES MELLITUS
  7. PRADAXA [Suspect]
     Indication: ATRIAL FIBRILLATION
     Dosage: 300 MG
     Route: 048
     Dates: start: 20101201
  8. FLAX SEED OIL [Concomitant]
     Indication: PROPHYLAXIS
  9. ZINC [Concomitant]
     Indication: HYPERTENSION
  10. FISH OIL [Concomitant]
     Indication: PROPHYLAXIS
  11. MIRAPEX [Suspect]
     Indication: RESTLESS LEGS SYNDROME
     Route: 048
     Dates: start: 20030101
  12. QUINAPRIL [Concomitant]
     Indication: HYPERTENSION
  13. FLUTICASONE PROPIONATE [Concomitant]

REACTIONS (5)
  - BLOOD URINE PRESENT [None]
  - FAECES DISCOLOURED [None]
  - FLATULENCE [None]
  - ATRIAL FIBRILLATION [None]
  - MEMORY IMPAIRMENT [None]
